FAERS Safety Report 5119046-3 (Version None)
Quarter: 2006Q3

REPORT INFORMATION
  Report Type: 
  Country: None (occurrence: None)
  Receive Date: 20060927
  Receipt Date: 20060920
  Transmission Date: 20061208
  Serious: Yes (Other)
  Sender: FDA-Public Use
  Company Number: 2006113411

PATIENT
  Sex: Male

DRUGS (1)
  1. LIPITOR [Suspect]
     Indication: BLOOD CHOLESTEROL INCREASED
     Dosage: 80 MG ORAL
     Route: 048
     Dates: start: 20060301, end: 20060601

REACTIONS (4)
  - DISEASE PROGRESSION [None]
  - GAIT DISTURBANCE [None]
  - MUSCLE DISORDER [None]
  - PARKINSON'S DISEASE [None]
